FAERS Safety Report 6719816-1 (Version None)
Quarter: 2010Q2

REPORT INFORMATION
  Report Type: 
  Country: None (occurrence: None)
  Receive Date: 20100511
  Receipt Date: 20100428
  Transmission Date: 20101027
  Serious: Yes (Hospitalization, Other)
  Sender: FDA-Public Use
  Company Number: PHHY2009CA30906

PATIENT
  Sex: Female

DRUGS (3)
  1. SANDOSTATIN LAR [Suspect]
     Indication: CARCINOID TUMOUR
     Dosage: 30 MG EVERY 4 WEEKS
     Route: 030
     Dates: start: 20090526
  2. SANDOSTATIN [Suspect]
     Dosage: 100 UG, TID
     Route: 058
  3. CAPECITABINE [Concomitant]

REACTIONS (16)
  - ABDOMINAL ADHESIONS [None]
  - ABDOMINAL DISTENSION [None]
  - ABDOMINAL PAIN [None]
  - ABDOMINAL PAIN UPPER [None]
  - BACK PAIN [None]
  - BLOOD PRESSURE INCREASED [None]
  - DIARRHOEA [None]
  - FATIGUE [None]
  - FLANK PAIN [None]
  - FLATULENCE [None]
  - FLUSHING [None]
  - GALLBLADDER OPERATION [None]
  - LIVER OPERATION [None]
  - NAUSEA [None]
  - OCULAR HYPERAEMIA [None]
  - OOPHORECTOMY [None]
